FAERS Safety Report 8252392-3 (Version None)
Quarter: 2012Q2

REPORT INFORMATION
  Report Type: 
  Country: None (occurrence: None)
  Receive Date: 20120402
  Receipt Date: 20110607
  Transmission Date: 20120825
  Serious: No
  Sender: FDA-Public Use
  Company Number: US-ABBOTT-11P-163-0804653-00

PATIENT
  Sex: Male
  Weight: 113.64 kg

DRUGS (11)
  1. LOVASTATIN [Concomitant]
     Indication: BLOOD CHOLESTEROL INCREASED
     Dosage: DAILY DOSE:  UNKNOWN
     Route: 065
  2. CLONAZEPAM [Concomitant]
     Indication: ANXIETY
     Dosage: DAILY DOSE:  UNKNOWN
     Route: 065
  3. PROMETHAZINE [Concomitant]
     Indication: GASTROOESOPHAGEAL REFLUX DISEASE
  4. PROMETHAZINE [Concomitant]
     Indication: NAUSEA
     Dosage: DAILY DOSE:  UNKNOWN, FREQUENCY: AS NEEDED
     Route: 065
  5. TESTOSTERONE [Suspect]
     Indication: ANDROGEN REPLACEMENT THERAPY
     Dosage: DAILY DOSE: 5 GRAM(S), VIA PUMP
     Route: 062
     Dates: start: 20110201, end: 20110101
  6. TESTOSTERONE [Suspect]
     Dosage: DAILY DOSE: 10 GRAM(S), VIA PUMP
     Route: 062
     Dates: start: 20110101
  7. LISINOPRIL [Concomitant]
     Indication: HYPERTENSION
     Dosage: DAILY DOSE:  UNKNOWN
     Route: 065
  8. ALUMINIUM HYDROXIDE GEL AND MAGNESIUM HYDROXIDE [Concomitant]
     Indication: NAUSEA
     Dosage: DAILY DOSE:  UNKNOWN, FREQUENCY: AS NEEDED
     Route: 065
  9. TESTOSTERONE [Suspect]
     Dosage: DAILY DOSE: 7.5 GRAM(S), VIA PUMP
     Route: 062
     Dates: start: 20110101, end: 20110101
  10. METHADONE [Concomitant]
     Indication: ARTHRALGIA
     Dosage: DAILY DOSE:  UNKNOWN
     Route: 065
  11. BUTALBITAL AND CAFFEINE AND PARACETAMOL [Concomitant]
     Indication: HEADACHE
     Dosage: DAILY DOSE:  UNKNOWN, FREQUENCY: AS NEEDED
     Route: 065

REACTIONS (3)
  - DRUG INEFFECTIVE [None]
  - NAUSEA [None]
  - HEADACHE [None]
